FAERS Safety Report 17819857 (Version 2)
Quarter: 2020Q2

REPORT INFORMATION
  Report Type: Spontaneous
  Country: US (occurrence: US)
  Receive Date: 20200524
  Receipt Date: 20200526
  Transmission Date: 20200714
  Serious: Yes (Other)
  Sender: FDA-Public Use
  Company Number: US-BEH-2020117491

PATIENT
  Sex: Male

DRUGS (3)
  1. PRIVIGEN [Suspect]
     Active Substance: HUMAN IMMUNOGLOBULIN G
     Indication: CHRONIC INFLAMMATORY DEMYELINATING POLYRADICULONEUROPATHY
     Dosage: 10 GRAM, FREQUENCY DAILY FOR 2 DAYS EVERY 4 WEEKS
     Route: 042
     Dates: start: 20191217
  2. PRIVIGEN [Suspect]
     Active Substance: HUMAN IMMUNOGLOBULIN G
     Dosage: 20 GRAM, FREQUENCY DAILY FOR 2 DAYS EVERY 4 WEEKS
     Route: 042
     Dates: start: 20191217
  3. PRIVIGEN [Suspect]
     Active Substance: HUMAN IMMUNOGLOBULIN G
     Dosage: 5 GRAM, FREQUENCY DAILY FOR 2 DAYS EVERY 4 WEEKS
     Route: 042
     Dates: start: 20191217

REACTIONS (3)
  - Therapy cessation [Unknown]
  - No adverse event [Unknown]
  - Red blood cell count decreased [Unknown]
